FAERS Safety Report 21795040 (Version 1)
Quarter: 2022Q4

REPORT INFORMATION
  Report Type: Report from Study
  Country: US (occurrence: US)
  Receive Date: 20221229
  Receipt Date: 20221229
  Transmission Date: 20230113
  Serious: Yes (Hospitalization)
  Sender: FDA-Public Use
  Company Number: US-ABBVIE-4252872

PATIENT
  Sex: Male

DRUGS (1)
  1. VENCLEXTA [Suspect]
     Active Substance: VENETOCLAX
     Indication: Acute myeloid leukaemia
     Dosage: 1 TABLET BY MOUTH ONCE DAILY WITH FOOD AND A FULL GLASS OF WATER FOR 21 DAYS ON THEN 7 DAYS OFF?F...
     Route: 048

REACTIONS (1)
  - Hospitalisation [Not Recovered/Not Resolved]
